FAERS Safety Report 7604425-2 (Version None)
Quarter: 2011Q2

REPORT INFORMATION
  Report Type: 
  Country: None (occurrence: None)
  Receive Date: 20110623
  Receipt Date: 20110608
  Transmission Date: 20111010
  Serious: Yes (Hospitalization)
  Sender: FDA-Public Use
  Company Number: CIP11001400

PATIENT
  Age: 71 Year
  Sex: Female

DRUGS (2)
  1. SOTALOL (SOTALOL) [Concomitant]
  2. NITROFURANTOIN MONOHYDRATE/MACROCRYSTALS [Suspect]
     Indication: URINARY TRACT INFECTION
     Dosage: 50 MG 4 TIMES DAILY, ORAL
     Route: 048

REACTIONS (3)
  - PYREXIA [None]
  - CUTANEOUS VASCULITIS [None]
  - HEPATIC FUNCTION ABNORMAL [None]
